FAERS Safety Report 8264594-0 (Version None)
Quarter: 2012Q2

REPORT INFORMATION
  Report Type: 
  Country: None (occurrence: None)
  Receive Date: 20120406
  Receipt Date: 20120329
  Transmission Date: 20120825
  Serious: Yes (Hospitalization)
  Sender: FDA-Public Use
  Company Number: US-UCBSA-054316

PATIENT
  Age: 31 Year
  Sex: Female

DRUGS (2)
  1. NO OTHER MEDICATIONS [Concomitant]
  2. CIMZIA [Suspect]
     Indication: CROHN'S DISEASE
     Dosage: DOSE : 2 INJECTION, LAST DOSE IN 20-MAR-2012
     Route: 058
     Dates: start: 20111001

REACTIONS (5)
  - SMALL INTESTINAL OBSTRUCTION [None]
  - SINUSITIS [None]
  - COLONIC OBSTRUCTION [None]
  - SMALL INTESTINAL PERFORATION [None]
  - MALAISE [None]
